FAERS Safety Report 15823522 (Version 1)
Quarter: 2019Q1

REPORT INFORMATION
  Report Type: Spontaneous
  Country: ES (occurrence: ES)
  Receive Date: 20190114
  Receipt Date: 20190114
  Transmission Date: 20190417
  Serious: Yes (Other)
  Sender: FDA-Public Use
  Company Number: PHHY2019ES005320

PATIENT
  Age: 51 Year
  Sex: Female

DRUGS (1)
  1. PIPERACILLIN AND TAZOBACTAM [Suspect]
     Active Substance: PIPERACILLIN SODIUM\TAZOBACTAM SODIUM
     Indication: DIVERTICULITIS
     Dosage: 1 DF, Q8H (4/0.5G CADA 8 HORAS)
     Route: 042
     Dates: start: 20181219, end: 20181219

REACTIONS (4)
  - Malaise [Recovering/Resolving]
  - Anaphylactic reaction [Recovering/Resolving]
  - Rash generalised [Recovering/Resolving]
  - Hypotension [Recovering/Resolving]

NARRATIVE: CASE EVENT DATE: 20181219
